FAERS Safety Report 4313107-4 (Version None)
Quarter: 2004Q1

REPORT INFORMATION
  Report Type: 
  Country: None (occurrence: None)
  Receive Date: 20040304
  Receipt Date: 20040216
  Transmission Date: 20041129
  Serious: Yes (Other)
  Sender: FDA-Public Use
  Company Number: JP_030901848

PATIENT
  Age: 73 Year
  Sex: Male
  Weight: 43 kg

DRUGS (6)
  1. GEMZAR [Suspect]
     Indication: NON-SMALL CELL LUNG CANCER
     Dosage: 1000 MG/M2/OTHER
     Route: 050
     Dates: start: 20021114, end: 20030407
  2. AQUPLA (NEDAPLATIN) [Concomitant]
  3. PICIBANIL (STREPTOCOCCUS PYOGENES) [Concomitant]
  4. DEXAMETHASONE SODIUM PHOSPHATE [Concomitant]
  5. KYTRIL [Concomitant]
  6. DINOPROST [Concomitant]

REACTIONS (2)
  - DISEASE PROGRESSION [None]
  - PNEUMONIA [None]
